FAERS Safety Report 7736231-2 (Version None)
Quarter: 2011Q3

REPORT INFORMATION
  Report Type: 
  Country: None (occurrence: None)
  Receive Date: 20110902
  Receipt Date: 20110822
  Transmission Date: 20111222
  Serious: Yes (Hospitalization)
  Sender: FDA-Public Use
  Company Number: 1000023083

PATIENT
  Age: 67 Year
  Sex: Male

DRUGS (7)
  1. OMEPRAZOLE [Suspect]
     Indication: GASTRIC DISORDER
     Dosage: 20 MG (20 MG, 1 IN 24 HR)
     Dates: end: 20100101
  2. OMEPRAZOLE [Suspect]
     Indication: PROPHYLAXIS
     Dosage: 20 MG (20 MG, 1 IN 24 HR)
     Dates: end: 20100101
  3. LOSARTAN (LOSARTAN) (LOSARTAN) [Concomitant]
  4. OMEPRAZOLE [Suspect]
     Indication: OESOPHAGITIS
     Dosage: 40 MG (40 MG, 1 IN 1 D), 40 MG (40 MG, MONDAY, WEDNESDAY, FRIDAY AND SUNDAY)
     Dates: start: 20100101
  5. ASPIRIN [Concomitant]
  6. DILTIAZEM [Suspect]
  7. SALMETEROL /FLUTICASONE PROPIONATE (SALMETEROL, FLUTICASONE PROPIONATE [Concomitant]

REACTIONS (6)
  - MUSCULAR WEAKNESS [None]
  - HYPOCALCAEMIA [None]
  - PARAESTHESIA [None]
  - OESOPHAGITIS [None]
  - TETANY [None]
  - HYPOMAGNESAEMIA [None]
